FAERS Safety Report 13958676 (Version 1)
Quarter: 2017Q3

REPORT INFORMATION
  Report Type: Spontaneous
  Country: US (occurrence: US)
  Receive Date: 20170911
  Receipt Date: 20170911
  Transmission Date: 20171128
  Serious: Yes (Hospitalization, Other)
  Sender: FDA-Public Use
  Company Number: US-ROCHE-1045146

PATIENT
  Sex: Female

DRUGS (1)
  1. RITUXAN [Suspect]
     Active Substance: RITUXIMAB
     Indication: PRODUCT USED FOR UNKNOWN INDICATION
     Route: 065

REACTIONS (7)
  - Dizziness [Unknown]
  - Cardio-respiratory arrest [Unknown]
  - Hypersensitivity [Unknown]
  - Dysphagia [Unknown]
  - Oropharyngeal pain [Unknown]
  - Pruritus [Unknown]
  - Dyspnoea [Unknown]
